FAERS Safety Report 6504751-4 (Version None)
Quarter: 2009Q4

REPORT INFORMATION
  Report Type: 
  Country: None (occurrence: None)
  Receive Date: 20091218
  Receipt Date: 20091207
  Transmission Date: 20100525
  Serious: Yes (Hospitalization, Other)
  Sender: FDA-Public Use
  Company Number: US-JNJFOC-20090905545

PATIENT
  Sex: Female
  Weight: 99.79 kg

DRUGS (22)
  1. REMICADE [Suspect]
     Route: 042
  2. REMICADE [Suspect]
     Indication: RHEUMATOID ARTHRITIS
     Route: 042
  3. METHOTREXATE [Concomitant]
     Indication: RHEUMATOID ARTHRITIS
  4. PREDNISONE [Concomitant]
     Indication: RHEUMATOID ARTHRITIS
  5. WARFARIN SODIUM [Concomitant]
     Indication: ATRIAL FIBRILLATION
  6. WARFARIN SODIUM [Concomitant]
     Indication: DIASTOLIC DYSFUNCTION
  7. ALBUTEROL [Concomitant]
     Dosage: 2 PUFFS DAILY
  8. ASPIRIN [Concomitant]
  9. CALCIUM AND VITAMIN D [Concomitant]
  10. COUMADIN [Concomitant]
  11. FOLIC ACID [Concomitant]
  12. FUROSEMIDE [Concomitant]
  13. HYDROCODONE BITARTRATE AND ACETAMINOPHEN [Concomitant]
     Dosage: 1-2 TABLETS AT BEDTIME
  14. POTASSIUM CHLORIDE [Concomitant]
  15. METOPROLOL TARTRATE [Concomitant]
  16. PROBENECID [Concomitant]
  17. PROTONIX [Concomitant]
  18. SALSALATE [Concomitant]
  19. SPIRIVA [Concomitant]
     Dosage: 1 MCG
  20. TYLENOL (CAPLET) [Concomitant]
     Dosage: 2 TABLETS EVERY 4-6 HOURS AS NEEDED
  21. WELCHOL [Concomitant]
  22. TEARS NATURALE [Concomitant]

REACTIONS (5)
  - CHRONIC OBSTRUCTIVE PULMONARY DISEASE [None]
  - HYPONATRAEMIA [None]
  - PNEUMONIA [None]
  - RESPIRATORY DISTRESS [None]
  - STREPTOCOCCAL INFECTION [None]
